FAERS Safety Report 9381724 (Version 2)
Quarter: 2013Q3

REPORT INFORMATION
  Report Type: Spontaneous
  Country: JP (occurrence: JP)
  Receive Date: 20130703
  Receipt Date: 20130814
  Transmission Date: 20140515
  Serious: Yes (Other)
  Sender: FDA-Public Use
  Company Number: JP-ASTELLAS-2013US006869

PATIENT
  Age: 84 Year
  Sex: Female

DRUGS (2)
  1. TARCEVA [Suspect]
     Indication: LUNG NEOPLASM MALIGNANT
     Dosage: 150 MG, UID/QD
     Route: 048
     Dates: start: 20130424, end: 20130607
  2. TARCEVA [Suspect]
     Dosage: UNK
     Route: 048

REACTIONS (3)
  - Ileus [Recovering/Resolving]
  - Mucosal inflammation [Unknown]
  - Glossitis [Unknown]
